FAERS Safety Report 20457876 (Version 1)
Quarter: 2022Q1

REPORT INFORMATION
  Report Type: Spontaneous
  Country: US (occurrence: US)
  Receive Date: 20220210
  Receipt Date: 20220210
  Transmission Date: 20220424
  Serious: No
  Sender: FDA-Public Use
  Company Number: US-AMGEN-USASP2022019561

PATIENT
  Age: 75 Year
  Sex: Male

DRUGS (2)
  1. MVASI [Suspect]
     Active Substance: BEVACIZUMAB-AWWB
     Indication: Small intestine carcinoma
     Dosage: 390 MILLIGRAM
     Route: 065
     Dates: start: 20210622
  2. MVASI [Suspect]
     Active Substance: BEVACIZUMAB-AWWB
     Indication: Metastases to liver

REACTIONS (1)
  - Accidental exposure to product [Unknown]

NARRATIVE: CASE EVENT DATE: 20220201
